FAERS Safety Report 8138612-4 (Version None)
Quarter: 2012Q1

REPORT INFORMATION
  Report Type: 
  Country: None (occurrence: None)
  Receive Date: 20120215
  Receipt Date: 20120208
  Transmission Date: 20120608
  Serious: Yes (Hospitalization, Other)
  Sender: FDA-Public Use
  Company Number: US-BAYER-2011-075264

PATIENT
  Age: 29 Year
  Sex: Female
  Weight: 126.98 kg

DRUGS (1)
  1. YAZ [Suspect]
     Indication: VAGINAL HAEMORRHAGE
     Dosage: UNK
     Dates: start: 20061026, end: 20070401

REACTIONS (3)
  - INJURY [None]
  - PULMONARY EMBOLISM [None]
  - PAIN [None]
